FAERS Safety Report 13936897 (Version 2)
Quarter: 2017Q4

REPORT INFORMATION
  Report Type: Report from Study
  Country: CA (occurrence: CA)
  Receive Date: 20170905
  Receipt Date: 20171128
  Transmission Date: 20180320
  Serious: Yes (Other)
  Sender: FDA-Public Use
  Company Number: CA-JNJFOC-20170901607

PATIENT
  Age: 64 Year
  Sex: Female
  Weight: 95 kg

DRUGS (1)
  1. STELARA [Suspect]
     Active Substance: USTEKINUMAB
     Indication: PSORIASIS
     Dosage: STRENGTH = 45 MG
     Route: 058
     Dates: start: 20160222

REACTIONS (2)
  - Post procedural infection [Unknown]
  - Tooth abscess [Unknown]

NARRATIVE: CASE EVENT DATE: 20170824
